FAERS Safety Report 19201122 (Version 2)
Quarter: 2021Q2

REPORT INFORMATION
  Report Type: Spontaneous
  Country: US (occurrence: US)
  Receive Date: 20210430
  Receipt Date: 20210614
  Transmission Date: 20210717
  Serious: No
  Sender: FDA-Public Use
  Company Number: US-PFIZER INC-2021395453

PATIENT
  Age: 86 Year

DRUGS (1)
  1. ESTRING [Suspect]
     Active Substance: ESTRADIOL
     Indication: BLADDER DISORDER
     Dosage: 2 MG

REACTIONS (4)
  - Bronchitis [Unknown]
  - Confusional state [Unknown]
  - Off label use [Unknown]
  - Nervousness [Unknown]
